FAERS Safety Report 24033173 (Version 1)
Quarter: 2024Q3

REPORT INFORMATION
  Report Type: Spontaneous
  Country: US (occurrence: US)
  Receive Date: 20240701
  Receipt Date: 20240701
  Transmission Date: 20241017
  Serious: No
  Sender: SCILEX PHARMACEUTICALS
  Company Number: US-SCILEX PHARMACEUTICALS INC.-US-SOR-23-00001

PATIENT

DRUGS (1)
  1. ELYXYB [Suspect]
     Active Substance: CELECOXIB
     Indication: Product used for unknown indication
     Dosage: UNK, UNK
     Route: 065

REACTIONS (1)
  - Product use complaint [Unknown]
